FAERS Safety Report 24903144 (Version 1)
Quarter: 2025Q1

REPORT INFORMATION
  Report Type: Spontaneous
  Country: FR (occurrence: FR)
  Receive Date: 20250130
  Receipt Date: 20250130
  Transmission Date: 20250408
  Serious: Yes (Other)
  Sender: RANBAXY
  Company Number: FR-SUN PHARMACEUTICAL INDUSTRIES LTD-2025RR-490603

PATIENT
  Age: 56 Year
  Sex: Male
  Weight: 80.5 kg

DRUGS (13)
  1. PANTOPRAZOLE [Suspect]
     Active Substance: PANTOPRAZOLE
     Indication: Gastric ulcer
     Route: 040
     Dates: start: 20241028, end: 20241115
  2. CEFTRIAXONE [Suspect]
     Active Substance: CEFTRIAXONE
     Indication: Bronchopneumopathy
     Route: 065
     Dates: start: 20240123, end: 20241112
  3. LANSOPRAZOLE [Suspect]
     Active Substance: LANSOPRAZOLE
     Indication: Gastric ulcer
     Route: 048
     Dates: start: 20241021, end: 20241115
  4. METRONIDAZOLE [Suspect]
     Active Substance: METRONIDAZOLE
     Indication: Bronchopneumopathy
     Route: 065
     Dates: start: 20241028, end: 20241112
  5. HALOPERIDOL [Suspect]
     Active Substance: HALOPERIDOL
     Indication: Product used for unknown indication
     Route: 048
     Dates: start: 20241109, end: 20241109
  6. ACETAMINOPHEN [Concomitant]
     Active Substance: ACETAMINOPHEN
     Indication: Product used for unknown indication
     Route: 048
     Dates: start: 20241106, end: 20241110
  7. FERINJECT [Concomitant]
     Active Substance: FERRIC CARBOXYMALTOSE
     Indication: Product used for unknown indication
     Route: 040
     Dates: start: 20241108, end: 20241108
  8. ACUPAN [Concomitant]
     Active Substance: NEFOPAM HYDROCHLORIDE
     Indication: Product used for unknown indication
     Route: 040
     Dates: start: 20241103, end: 20241104
  9. ACUPAN [Concomitant]
     Active Substance: NEFOPAM HYDROCHLORIDE
     Route: 040
     Dates: start: 20241106, end: 20241108
  10. PROPOFOL [Concomitant]
     Active Substance: PROPOFOL
     Indication: Product used for unknown indication
     Route: 040
     Dates: start: 20241021, end: 20241023
  11. PROPOFOL [Concomitant]
     Active Substance: PROPOFOL
     Route: 040
     Dates: start: 20241028, end: 20241028
  12. PROPOFOL [Concomitant]
     Active Substance: PROPOFOL
     Route: 040
     Dates: start: 20241108, end: 20241108
  13. ENOXAPARIN [Concomitant]
     Active Substance: ENOXAPARIN
     Indication: Product used for unknown indication
     Dosage: 0.4 MILLILITER, DAILY
     Route: 058
     Dates: end: 20241125

REACTIONS (1)
  - Agranulocytosis [Recovered/Resolved]

NARRATIVE: CASE EVENT DATE: 20241113
